FAERS Safety Report 9850119 (Version 1)
Quarter: 2013Q4

REPORT INFORMATION
  Report Type: Spontaneous
  Country: US (occurrence: None)
  Receive Date: 20131226
  Receipt Date: 20131226
  Transmission Date: 20140711
  Serious: Yes (Other)
  Sender: FDA-Public Use
  Company Number: PHEH2012US022055

PATIENT
  Sex: Female
  Weight: 122 kg

DRUGS (3)
  1. SANDOSTATIN [Suspect]
     Indication: METASTATIC CARCINOID TUMOUR
     Dosage: UNK
  2. AFINITOR (EVEROLIMUS) [Concomitant]
  3. DIOVAN (VALSARTAN) [Concomitant]

REACTIONS (1)
  - Malignant neoplasm progression [None]
